FAERS Safety Report 20339913 (Version 1)
Quarter: 2022Q1

REPORT INFORMATION
  Report Type: Spontaneous
  Country: US (occurrence: None)
  Receive Date: 20220117
  Receipt Date: 20220117
  Transmission Date: 20220423
  Serious: No
  Sender: FDA-Public Use
  Company Number: 2022A018732

PATIENT
  Sex: Female

DRUGS (2)
  1. PULMICORT FLEXHALER [Suspect]
     Active Substance: BUDESONIDE
     Route: 055
  2. ALBUTEROL [Concomitant]
     Active Substance: ALBUTEROL
     Dosage: 2 PUFFS IN THE MORNING

REACTIONS (2)
  - Dry throat [Unknown]
  - Product dose omission issue [Unknown]
